FAERS Safety Report 5856824-7 (Version None)
Quarter: 2008Q3

REPORT INFORMATION
  Report Type: 
  Country: None (occurrence: None)
  Receive Date: 20080825
  Receipt Date: 20080811
  Transmission Date: 20090109
  Serious: Yes (Other)
  Sender: FDA-Public Use
  Company Number: JP-GENENTECH-259657

PATIENT
  Sex: Male
  Weight: 52 kg

DRUGS (6)
  1. BEVACIZUMAB [Suspect]
     Indication: RECTAL CANCER
     Dosage: 5 MG/KG, QD
     Route: 041
     Dates: start: 20070905, end: 20080325
  2. IRINOTECAN HCL [Suspect]
     Indication: DRUG USE FOR UNKNOWN INDICATION
     Dosage: UNK, UNK
     Dates: end: 20080325
  3. OXALIPLATIN [Concomitant]
     Indication: DRUG USE FOR UNKNOWN INDICATION
     Dosage: UNK, UNK
     Dates: end: 20080323
  4. LEUCOVORIN CALCIUM [Concomitant]
     Indication: DRUG USE FOR UNKNOWN INDICATION
     Dosage: UNK, UNK
     Dates: end: 20080326
  5. FLUOROURACIL [Concomitant]
     Indication: DRUG USE FOR UNKNOWN INDICATION
     Dosage: UNK
     Dates: end: 20080326
  6. WARFARIN SODIUM [Concomitant]
     Indication: DRUG USE FOR UNKNOWN INDICATION
     Dosage: UNK
     Dates: start: 20070522

REACTIONS (2)
  - ENTEROCOLITIS [None]
  - INTERSTITIAL LUNG DISEASE [None]
